FAERS Safety Report 25131887 (Version 1)
Quarter: 2025Q1

REPORT INFORMATION
  Report Type: Spontaneous
  Country: CN (occurrence: CN)
  Receive Date: 20250327
  Receipt Date: 20250327
  Transmission Date: 20250409
  Serious: Yes (Hospitalization)
  Sender: ALEXION PHARMACEUTICALS
  Company Number: CN-ASTRAZENECA-202503CHN019153CN

PATIENT
  Age: 33 Year
  Weight: 82 kg

DRUGS (1)
  1. DAPAGLIFLOZIN [Suspect]
     Active Substance: DAPAGLIFLOZIN
     Indication: Blood glucose decreased
     Dosage: 1 MILLIGRAM, QD

REACTIONS (3)
  - Dry mouth [Unknown]
  - Polydipsia [Unknown]
  - Ketosis [Recovered/Resolved]
